FAERS Safety Report 18112248 (Version 1)
Quarter: 2020Q3

REPORT INFORMATION
  Report Type: Spontaneous
  Country: US (occurrence: US)
  Receive Date: 20200805
  Receipt Date: 20200805
  Transmission Date: 20201103
  Serious: No
  Sender: FDA-Public Use
  Company Number: US-SA-2020SA203022

PATIENT

DRUGS (5)
  1. ROSUVASTATIN. [Concomitant]
     Active Substance: ROSUVASTATIN
  2. XARELTO [Concomitant]
     Active Substance: RIVAROXABAN
  3. DUPIXENT [Suspect]
     Active Substance: DUPILUMAB
     Indication: NEURODERMATITIS
     Dosage: 200 MG, QOW
     Route: 058
     Dates: start: 20200514
  4. LISINOPRIL. [Concomitant]
     Active Substance: LISINOPRIL
  5. METOPROLOL SUCCINATE. [Concomitant]
     Active Substance: METOPROLOL SUCCINATE

REACTIONS (2)
  - Product use issue [Unknown]
  - Neurodermatitis [Not Recovered/Not Resolved]

NARRATIVE: CASE EVENT DATE: 20200514
